FAERS Safety Report 23936240 (Version 1)
Quarter: 2024Q2

REPORT INFORMATION
  Report Type: Spontaneous
  Country: NL (occurrence: None)
  Receive Date: 20240604
  Receipt Date: 20240604
  Transmission Date: 20240716
  Serious: Yes (Hospitalization)
  Sender: FDA-Public Use
  Company Number: None

PATIENT
  Age: 63 Year
  Sex: Female
  Weight: 74 kg

DRUGS (1)
  1. HYDROXYCHLOROQUINE [Suspect]
     Active Substance: HYDROXYCHLOROQUINE
     Indication: Rheumatic disorder
     Dosage: 1 X PER DAY 2 TABLETS, STRENGTH: 200 MG
     Dates: start: 20240424, end: 20240427

REACTIONS (3)
  - Arrhythmia [Recovering/Resolving]
  - Dry mouth [Unknown]
  - Heart rate increased [Unknown]
